FAERS Safety Report 14651624 (Version 1)
Quarter: 2018Q1

REPORT INFORMATION
  Report Type: Spontaneous
  Country: US (occurrence: US)
  Receive Date: 20180317
  Receipt Date: 20180317
  Transmission Date: 20180509
  Serious: No
  Sender: FDA-Public Use
  Company Number: US-ASTRAZENECA-2018SE33066

PATIENT

DRUGS (1)
  1. FASENRA [Suspect]
     Active Substance: BENRALIZUMAB
     Dosage: FASENRA
     Route: 058

REACTIONS (4)
  - Contusion [Unknown]
  - Influenza [Unknown]
  - Injection site pain [Unknown]
  - Injection site reaction [Unknown]
